FAERS Safety Report 5001006-4 (Version None)
Quarter: 2006Q2

REPORT INFORMATION
  Report Type: 
  Country: None (occurrence: None)
  Receive Date: 20060512
  Receipt Date: 20060509
  Transmission Date: 20061013
  Serious: Yes (Death)
  Sender: FDA-Public Use
  Company Number: US-GLAXOSMITHKLINE-A0604848A

PATIENT
  Age: 41 Year
  Sex: Male
  Weight: 109.1 kg

DRUGS (2)
  1. PAXIL [Suspect]
     Indication: DEPRESSION
     Dosage: 20MG PER DAY
     Route: 048
     Dates: start: 20050901, end: 20051201
  2. NO CONCURRENT MEDICATION [Concomitant]

REACTIONS (3)
  - ANTIDEPRESSANT DRUG LEVEL ABOVE THERAPEUTIC [None]
  - COMPLETED SUICIDE [None]
  - PARANOIA [None]
